FAERS Safety Report 5383748-4 (Version None)
Quarter: 2007Q3

REPORT INFORMATION
  Report Type: 
  Country: None (occurrence: None)
  Receive Date: 20070711
  Receipt Date: 20070627
  Transmission Date: 20080115
  Serious: Yes (Other)
  Sender: FDA-Public Use
  Company Number: PHBS2007CO10785

PATIENT
  Age: 51 Year
  Sex: Female

DRUGS (1)
  1. GENTEAL (NVO) [Suspect]
     Indication: CONJUNCTIVAL HYPERAEMIA
     Dosage: 2 DRP, BID
     Dates: start: 20070601

REACTIONS (2)
  - CELLULITIS [None]
  - CONJUNCTIVAL HYPERAEMIA [None]
